FAERS Safety Report 23549757 (Version 2)
Quarter: 2024Q2

REPORT INFORMATION
  Report Type: Spontaneous
  Country: FR (occurrence: FR)
  Receive Date: 20240221
  Receipt Date: 20240409
  Transmission Date: 20240717
  Serious: Yes (Other)
  Sender: FDA-Public Use
  Company Number: FR-AMGEN-FRASP2024032435

PATIENT

DRUGS (1)
  1. ADALIMUMAB [Suspect]
     Active Substance: ADALIMUMAB\ISOPROPYL ALCOHOL
     Indication: Uveitis
     Dosage: 40 MILLIGRAM, Q2WK
     Route: 058

REACTIONS (4)
  - Adverse event [Unknown]
  - Pneumonia [Unknown]
  - Injection related reaction [Unknown]
  - Infection [Unknown]
